FAERS Safety Report 10432553 (Version 1)
Quarter: 2014Q3

REPORT INFORMATION
  Report Type: Spontaneous
  Country: US (occurrence: FR)
  Receive Date: 20140905
  Receipt Date: 20140905
  Transmission Date: 20150326
  Serious: Yes (Hospitalization, Disabling)
  Sender: FDA-Public Use
  Company Number: 2013SP007307

PATIENT
  Age: 58 Year
  Sex: Male

DRUGS (7)
  1. TRACLEER [Concomitant]
     Active Substance: BOSENTAN\BOSENTAN MONOHYDRATE
     Indication: PRODUCT USED FOR UNKNOWN INDICATION
  2. BILASKA [Suspect]
     Active Substance: BILASTINE
     Indication: RHINITIS
     Route: 048
     Dates: start: 20130708, end: 20130710
  3. PARACETAMOL [Concomitant]
     Active Substance: ACETAMINOPHEN
     Indication: PRODUCT USED FOR UNKNOWN INDICATION
  4. CACIT VITAMINE D3 [Concomitant]
     Active Substance: CALCIUM CARBONATE\CHOLECALCIFEROL
     Indication: PRODUCT USED FOR UNKNOWN INDICATION
  5. METHOTREXATE [Suspect]
     Active Substance: METHOTREXATE
     Indication: SCLERODERMA
     Route: 058
     Dates: start: 2013, end: 201307
  6. CORTANCYL [Suspect]
     Active Substance: PREDNISONE
     Indication: SCLERODERMA
     Route: 048
     Dates: start: 2013
  7. BUDESONIDE. [Suspect]
     Active Substance: BUDESONIDE
     Indication: RHINITIS
     Route: 045
     Dates: start: 20130708, end: 20130710

REACTIONS (13)
  - Rales [Recovered/Resolved with Sequelae]
  - Renal failure acute [Recovered/Resolved with Sequelae]
  - Oedema peripheral [Recovered/Resolved with Sequelae]
  - Scleroderma renal crisis [Recovered/Resolved with Sequelae]
  - Systemic sclerosis [Recovered/Resolved with Sequelae]
  - Cough [Recovered/Resolved with Sequelae]
  - Renal tubular disorder [Recovered/Resolved with Sequelae]
  - Haemoptysis [Recovered/Resolved with Sequelae]
  - Headache [Recovered/Resolved with Sequelae]
  - Nephroangiosclerosis [Recovered/Resolved with Sequelae]
  - Orthopnoea [Recovered/Resolved with Sequelae]
  - Pleural effusion [Recovered/Resolved with Sequelae]
  - Condition aggravated [Recovered/Resolved with Sequelae]

NARRATIVE: CASE EVENT DATE: 20130710
